FAERS Safety Report 6410264-0 (Version None)
Quarter: 2009Q4

REPORT INFORMATION
  Report Type: 
  Country: None (occurrence: None)
  Receive Date: 20091022
  Receipt Date: 20091020
  Transmission Date: 20100525
  Serious: Yes (Hospitalization, Other)
  Sender: FDA-Public Use
  Company Number: A0810193A

PATIENT
  Age: 83 Year
  Sex: Male
  Weight: 76.4 kg

DRUGS (1)
  1. AVODART [Suspect]
     Indication: DRUG USE FOR UNKNOWN INDICATION
     Route: 065

REACTIONS (4)
  - BREAST ENLARGEMENT [None]
  - BREAST OPERATION [None]
  - BREAST TENDERNESS [None]
  - POLYGLANDULAR DISORDER [None]
